FAERS Safety Report 15065253 (Version 1)
Quarter: 2018Q2

REPORT INFORMATION
  Report Type: Spontaneous
  Country: AU (occurrence: AU)
  Receive Date: 20180626
  Receipt Date: 20180626
  Transmission Date: 20180711
  Serious: Yes (Other)
  Sender: FDA-Public Use
  Company Number: AU-ROCHE-2144542

PATIENT
  Sex: Male

DRUGS (1)
  1. RITUXIMAB. [Suspect]
     Active Substance: RITUXIMAB
     Indication: VIRAEMIA
     Route: 065

REACTIONS (6)
  - Intentional product use issue [Unknown]
  - Rhinitis [Unknown]
  - Sinusitis [Unknown]
  - Off label use [Unknown]
  - Testicular rupture [Unknown]
  - Pyrexia [Unknown]
